FAERS Safety Report 7198345-8 (Version None)
Quarter: 2010Q4

REPORT INFORMATION
  Report Type: 
  Country: None (occurrence: None)
  Receive Date: 20101223
  Receipt Date: 20101223
  Transmission Date: 20110411
  Serious: No
  Sender: FDA-Public Use
  Company Number: None

PATIENT
  Sex: Female
  Weight: 56.9 kg

DRUGS (9)
  1. SERTRALINE HYDROCHLORIDE [Suspect]
     Indication: ABDOMINAL PAIN
     Dosage: 50 MG QDAY PO
     Route: 048
     Dates: start: 20101108, end: 20101212
  2. SERTRALINE HYDROCHLORIDE [Suspect]
     Indication: DEPRESSION
     Dosage: 50 MG QDAY PO
     Route: 048
     Dates: start: 20101108, end: 20101212
  3. SENNA [Concomitant]
  4. MIRALAX [Concomitant]
  5. MINERAL OIL [Concomitant]
  6. NEXIUM [Concomitant]
  7. ZOFRAN [Concomitant]
  8. MERCAPTOPURINE [Concomitant]
  9. PREDNISONE [Concomitant]

REACTIONS (2)
  - MYDRIASIS [None]
  - VISUAL IMPAIRMENT [None]
